FAERS Safety Report 6421595-2 (Version None)
Quarter: 2009Q4

REPORT INFORMATION
  Report Type: 
  Country: None (occurrence: None)
  Receive Date: 20091030
  Receipt Date: 20091020
  Transmission Date: 20100525
  Serious: Yes (Hospitalization)
  Sender: FDA-Public Use
  Company Number: AU-CELGENEUS-008-21880-09101532

PATIENT
  Sex: Female
  Weight: 70 kg

DRUGS (1)
  1. REVLIMID [Suspect]
     Indication: MULTIPLE MYELOMA
     Route: 048
     Dates: start: 20081224

REACTIONS (3)
  - BLOOD CREATININE INCREASED [None]
  - FLUID OVERLOAD [None]
  - HYPERCALCAEMIA [None]
